FAERS Safety Report 10026121 (Version 1)
Quarter: 2014Q1

REPORT INFORMATION
  Report Type: Spontaneous
  Country: None (occurrence: US)
  Receive Date: 20140320
  Receipt Date: 20140320
  Transmission Date: 20141002
  Serious: No
  Sender: FDA-Public Use
  Company Number: US-ALLERGAN-1403021US

PATIENT
  Sex: Male

DRUGS (1)
  1. LUMIGAN 0.01% [Suspect]
     Indication: PRODUCT USED FOR UNKNOWN INDICATION

REACTIONS (3)
  - Epistaxis [Unknown]
  - Cough [Unknown]
  - Sneezing [Unknown]
